FAERS Safety Report 4708873-X (Version None)
Quarter: 2005Q3

REPORT INFORMATION
  Report Type: 
  Country: None (occurrence: None)
  Receive Date: 20050705
  Receipt Date: 22000622
  Transmission Date: 20060218
  Serious: Yes (Hospitalization)
  Sender: FDA-Public Use
  Company Number: 2005RL000070

PATIENT
  Age: 79 Year
  Sex: Female

DRUGS (6)
  1. PROPAFENONE HYDROCHLORIDE [Suspect]
     Dosage: 1 DF; BID, PO
     Route: 048
     Dates: end: 20050525
  2. VERAPAMIL [Suspect]
     Dosage: 240 MG; QD; PO
     Route: 048
     Dates: end: 20050525
  3. LOSARTAN [Suspect]
     Dosage: .5 DF; QD; PO
     Route: 048
     Dates: end: 20050525
  4. MEPROBAMATE [Suspect]
     Dosage: . 5  DF; TID; PO
     Route: 048
     Dates: end: 20050525
  5. LEVOTHYROXINE SODIUM [Suspect]
     Dosage: 1 DF; QD ;PO
     Route: 048
     Dates: end: 20050525
  6. POTASSIUM (POTASSIUM) [Suspect]
     Dosage: 2 DF; BID; PO
     Route: 048
     Dates: end: 20050525

REACTIONS (9)
  - AORTIC VALVE DISEASE [None]
  - ATRIAL FIBRILLATION [None]
  - ATRIOVENTRICULAR BLOCK FIRST DEGREE [None]
  - BUNDLE BRANCH BLOCK LEFT [None]
  - CONFUSIONAL STATE [None]
  - DEPRESSED LEVEL OF CONSCIOUSNESS [None]
  - EPILEPSY [None]
  - HYPOTENSION [None]
  - MITRAL VALVE DISEASE [None]
